FAERS Safety Report 17426621 (Version 1)
Quarter: 2020Q1

REPORT INFORMATION
  Report Type: Other
  Country: PT (occurrence: PT)
  Receive Date: 20200217
  Receipt Date: 20200217
  Transmission Date: 20200409
  Serious: Yes (Hospitalization, Other)
  Sender: FDA-Public Use
  Company Number: PT-NAVINTA LLC-000084

PATIENT
  Age: 34 Year
  Sex: Female

DRUGS (4)
  1. ROPIVACAINE/ROPIVACAINE HYDROCHLORIDE [Suspect]
     Active Substance: ROPIVACAINE HYDROCHLORIDE
     Indication: SPINAL ANAESTHESIA
     Route: 037
  2. ROPIVACAINE/ROPIVACAINE HYDROCHLORIDE [Suspect]
     Active Substance: ROPIVACAINE HYDROCHLORIDE
     Indication: DELIVERY
     Route: 037
  3. FENTANYL. [Suspect]
     Active Substance: FENTANYL
     Indication: SPINAL ANAESTHESIA
     Route: 037
  4. FENTANYL. [Suspect]
     Active Substance: FENTANYL
     Indication: DELIVERY
     Route: 037

REACTIONS (1)
  - Meningitis aseptic [Recovered/Resolved]
